FAERS Safety Report 14874066 (Version 1)
Quarter: 2018Q2

REPORT INFORMATION
  Report Type: Report from Study
  Country: BR (occurrence: BR)
  Receive Date: 20180510
  Receipt Date: 20180510
  Transmission Date: 20180711
  Serious: Yes (Hospitalization)
  Sender: FDA-Public Use
  Company Number: PHHY2018BR003607

PATIENT
  Sex: Female
  Weight: 21 kg

DRUGS (1)
  1. EXJADE [Suspect]
     Active Substance: DEFERASIROX
     Indication: IRON OVERLOAD
     Dosage: 500 MG, QD
     Route: 065
     Dates: start: 2016, end: 201804

REACTIONS (5)
  - Weight decreased [Unknown]
  - Pneumonia [Recovering/Resolving]
  - Swelling face [Recovering/Resolving]
  - Cardiac disorder [Recovering/Resolving]
  - Breast swelling [Recovering/Resolving]
